FAERS Safety Report 19093133 (Version 7)
Quarter: 2021Q4

REPORT INFORMATION
  Report Type: Report from Study
  Country: DE (occurrence: DE)
  Receive Date: 20210405
  Receipt Date: 20211229
  Transmission Date: 20220303
  Serious: Yes (Hospitalization, Other)
  Sender: FDA-Public Use
  Company Number: DE-BRISTOL-MYERS SQUIBB COMPANY-BMS-2021-023091

PATIENT
  Age: 60 Year
  Sex: Male
  Weight: 46.9 kg

DRUGS (6)
  1. NIVOLUMAB [Suspect]
     Active Substance: NIVOLUMAB
     Indication: Squamous cell carcinoma of head and neck
     Dosage: 3TMG/KG BODY WEIGHT, 240,0 MG / I.V
     Route: 042
     Dates: start: 20201229, end: 20210319
  2. PANTOPRAZOLE [Concomitant]
     Active Substance: PANTOPRAZOLE
     Indication: Prophylaxis
     Dosage: 40 MILLIGRAM
     Route: 065
     Dates: start: 20201201, end: 20210311
  3. NEXIUM I.V. [Concomitant]
     Active Substance: ESOMEPRAZOLE SODIUM
     Indication: Prophylaxis
     Dosage: 40 MILLIGRAM
     Route: 065
     Dates: start: 20210311, end: 20210316
  4. ACETYLCYSTEINE [Concomitant]
     Active Substance: ACETYLCYSTEINE
     Indication: Product used for unknown indication
     Dosage: 600 MILLIGRAM
     Route: 065
     Dates: start: 20201201, end: 20210327
  5. METAMIZOL [Concomitant]
     Active Substance: METAMIZOLE SODIUM
     Indication: Malignant neoplasm progression
     Dosage: 160 TROPFEN
     Dates: start: 20201201, end: 202103
  6. METAMIZOL [Concomitant]
     Active Substance: METAMIZOLE SODIUM
     Dosage: 75 TROPFEN
     Route: 065
     Dates: start: 20210311, end: 20210327

REACTIONS (13)
  - Dysphagia [Not Recovered/Not Resolved]
  - Pneumonia fungal [Recovering/Resolving]
  - General physical health deterioration [Recovered/Resolved]
  - Malignant neoplasm progression [Not Recovered/Not Resolved]
  - Erosive duodenitis [Not Recovered/Not Resolved]
  - Lymphangitis [Unknown]
  - Immune-mediated lung disease [Unknown]
  - Pleural effusion [Unknown]
  - Pain in extremity [Unknown]
  - Insomnia [Unknown]
  - Nocturia [Recovered/Resolved]
  - Gastritis [Not Recovered/Not Resolved]
  - Oedema peripheral [Recovered/Resolved]

NARRATIVE: CASE EVENT DATE: 20210216
